FAERS Safety Report 6251178-9 (Version None)
Quarter: 2009Q2

REPORT INFORMATION
  Report Type: 
  Country: None (occurrence: None)
  Receive Date: 20090630
  Receipt Date: 20090511
  Transmission Date: 20091009
  Serious: No
  Sender: FDA-Public Use
  Company Number: US-ABBOTT-09P-163-0572510-00

PATIENT
  Sex: Female

DRUGS (17)
  1. ZEMPLAR [Suspect]
     Indication: HYPERPARATHYROIDISM
     Dates: start: 20081003
  2. ZEMPLAR [Suspect]
     Dates: start: 20090301
  3. ZEGERIZ [Concomitant]
     Indication: DRUG USE FOR UNKNOWN INDICATION
  4. KLOR-CON [Concomitant]
     Indication: DRUG USE FOR UNKNOWN INDICATION
  5. TORSEMIDE [Concomitant]
     Indication: DRUG USE FOR UNKNOWN INDICATION
  6. COLCHICINE [Concomitant]
     Indication: DRUG USE FOR UNKNOWN INDICATION
  7. OXYBUTIN [Concomitant]
     Indication: DRUG USE FOR UNKNOWN INDICATION
  8. GLIMEPIRIDE [Concomitant]
     Indication: DRUG USE FOR UNKNOWN INDICATION
  9. LEVOTHYROXINE SODIUM [Concomitant]
     Indication: DRUG USE FOR UNKNOWN INDICATION
  10. PROMETRIUM [Concomitant]
     Indication: DRUG USE FOR UNKNOWN INDICATION
  11. ATENOLOL [Concomitant]
     Indication: DRUG USE FOR UNKNOWN INDICATION
  12. CYTOMEL [Concomitant]
     Indication: DRUG USE FOR UNKNOWN INDICATION
  13. FOLBIC [Concomitant]
     Indication: DRUG USE FOR UNKNOWN INDICATION
  14. VYTORIN [Concomitant]
     Indication: DRUG USE FOR UNKNOWN INDICATION
  15. EXFORGE [Concomitant]
     Indication: DRUG USE FOR UNKNOWN INDICATION
  16. TEXTURNA [Concomitant]
     Indication: DRUG USE FOR UNKNOWN INDICATION
  17. CHONDROITIN W/GLUCOSAMINE [Concomitant]
     Indication: DRUG USE FOR UNKNOWN INDICATION

REACTIONS (4)
  - CONSTIPATION [None]
  - DIZZINESS [None]
  - FATIGUE [None]
  - NAUSEA [None]
